FAERS Safety Report 8460405-9 (Version None)
Quarter: 2012Q2

REPORT INFORMATION
  Report Type: 
  Country: None (occurrence: None)
  Receive Date: 20120622
  Receipt Date: 20120614
  Transmission Date: 20120825
  Serious: Yes (Other)
  Sender: FDA-Public Use
  Company Number: CA-INCYTE CORPORATION-2012IN000978

PATIENT
  Sex: Male

DRUGS (2)
  1. ACDK-4 INHIBITOR [Concomitant]
     Dosage: 1 TAB, QD
  2. JAKAFI [Suspect]
     Indication: SARCOMA
     Dosage: 20 MG, BID
     Route: 048
     Dates: start: 20120101

REACTIONS (2)
  - ANAEMIA [None]
  - ABDOMINAL NEOPLASM [None]
